FAERS Safety Report 6373721-1 (Version None)
Quarter: 2009Q3

REPORT INFORMATION
  Report Type: 
  Country: None (occurrence: None)
  Receive Date: 20090924
  Receipt Date: 20090506
  Transmission Date: 20100115
  Serious: No
  Sender: FDA-Public Use
  Company Number: US-ASTRAZENECA-2009UW11528

PATIENT
  Age: 56 Year
  Sex: Female

DRUGS (1)
  1. SEROQUEL [Suspect]
     Dosage: 800 MG, DAILY
     Route: 048
     Dates: start: 20030101

REACTIONS (2)
  - EXTRAOCULAR MUSCLE PARESIS [None]
  - NASAL CONGESTION [None]
